FAERS Safety Report 4397721-6 (Version None)
Quarter: 2004Q3

REPORT INFORMATION
  Report Type: 
  Country: None (occurrence: None)
  Receive Date: 20040713
  Receipt Date: 20040707
  Transmission Date: 20050211
  Serious: Yes (Hospitalization)
  Sender: FDA-Public Use
  Company Number: KII-2001-0011922

PATIENT
  Age: 39 Year
  Sex: Female

DRUGS (3)
  1. MS CONTIN [Suspect]
     Indication: PAIN
     Dosage: 30 MG, Q12H,
  2. EFFEXOR XR [Suspect]
     Dosage: 150 MG, DAILY
  3. AMBIEN [Suspect]
     Dosage: 10 MG, HS

REACTIONS (6)
  - CHEST PAIN [None]
  - HEADACHE [None]
  - MYALGIA [None]
  - PALPITATIONS [None]
  - SELF-MEDICATION [None]
  - TREATMENT NONCOMPLIANCE [None]
